FAERS Safety Report 5855713-1 (Version None)
Quarter: 2008Q3

REPORT INFORMATION
  Report Type: 
  Country: None (occurrence: None)
  Receive Date: 20080825
  Receipt Date: 20080812
  Transmission Date: 20090109
  Serious: Yes (Other)
  Sender: FDA-Public Use
  Company Number: FR-SP-2008-02687

PATIENT
  Age: 71 Year
  Sex: Male

DRUGS (1)
  1. BCG - IT (CONNAUGHT) [Suspect]
     Indication: BLADDER CANCER
     Route: 043

REACTIONS (1)
  - PROSTATITIS [None]
